FAERS Safety Report 9789855 (Version 4)
Quarter: 2015Q4

REPORT INFORMATION
  Report Type: Report from Study
  Country: US (occurrence: US)
  Receive Date: 20131231
  Receipt Date: 20151023
  Transmission Date: 20160305
  Serious: Yes (Hospitalization)
  Sender: FDA-Public Use
  Company Number: US-ROCHE-1281441

PATIENT
  Sex: Male

DRUGS (14)
  1. NEURONTIN [Concomitant]
     Active Substance: GABAPENTIN
     Route: 065
     Dates: start: 20121207
  2. LUCENTIS [Suspect]
     Active Substance: RANIBIZUMAB
     Indication: DIABETIC RETINAL OEDEMA
     Route: 050
     Dates: start: 20130502
  3. LUCENTIS [Suspect]
     Active Substance: RANIBIZUMAB
     Indication: DIABETIC EYE DISEASE
     Route: 050
     Dates: start: 20130214
  4. LIDOCAINE. [Concomitant]
     Active Substance: LIDOCAINE
     Route: 057
  5. LUCENTIS [Suspect]
     Active Substance: RANIBIZUMAB
     Indication: CATARACT NUCLEAR
     Dosage: OS
     Route: 050
     Dates: start: 20130807
  6. LUCENTIS [Suspect]
     Active Substance: RANIBIZUMAB
     Indication: VITREOUS DETACHMENT
     Dosage: OS
     Route: 050
     Dates: start: 20131107
  7. BETADINE [Concomitant]
     Active Substance: POVIDONE-IODINE
     Route: 065
  8. LANTUS [Concomitant]
     Active Substance: INSULIN GLARGINE
     Route: 058
  9. GLUCOPHAGE [Concomitant]
     Active Substance: METFORMIN HYDROCHLORIDE
     Route: 065
     Dates: start: 20121207
  10. LUCENTIS [Suspect]
     Active Substance: RANIBIZUMAB
     Indication: NEOVASCULAR AGE-RELATED MACULAR DEGENERATION
     Dosage: 3-4 MM FROM THE LIMBUS; MOST RECENT DOSE ON 11/SEP/2013
     Route: 050
     Dates: start: 20121024, end: 20130109
  11. PHENYLEPHRINE HCL [Concomitant]
     Active Substance: PHENYLEPHRINE HYDROCHLORIDE
     Route: 065
  12. LUCENTIS [Suspect]
     Active Substance: RANIBIZUMAB
     Indication: DIABETIC RETINOPATHY
     Route: 050
     Dates: start: 20121207
  13. LASIX [Concomitant]
     Active Substance: FUROSEMIDE
     Route: 065
     Dates: start: 20121207
  14. PROPARACAINE [Concomitant]
     Active Substance: PROPARACAINE
     Route: 065

REACTIONS (10)
  - Retinal scar [Unknown]
  - Maculopathy [Unknown]
  - Vision blurred [Unknown]
  - Visual impairment [Unknown]
  - Appendicectomy [Unknown]
  - Cystoid macular oedema [Unknown]
  - Visual acuity reduced [Unknown]
  - Vitreous floaters [Unknown]
  - Glare [Unknown]
  - Diabetic retinal oedema [Unknown]
